FAERS Safety Report 21363041 (Version 4)
Quarter: 2023Q2

REPORT INFORMATION
  Report Type: Spontaneous
  Country: US (occurrence: US)
  Receive Date: 20220922
  Receipt Date: 20230605
  Transmission Date: 20230722
  Serious: No
  Sender: FDA-Public Use
  Company Number: US-PHARMAESSENTIA CORPORATION-US-2022-PEC-000676

PATIENT

DRUGS (6)
  1. BESREMI [Suspect]
     Active Substance: ROPEGINTERFERON ALFA-2B-NJFT
     Indication: Polycythaemia vera
     Dosage: 300 MCG, Q2W (EVERY 14 DAYS)
     Route: 058
     Dates: start: 20220525
  2. BESREMI [Suspect]
     Active Substance: ROPEGINTERFERON ALFA-2B-NJFT
     Dosage: 400 MCG, Q2W
     Route: 058
  3. BESREMI [Suspect]
     Active Substance: ROPEGINTERFERON ALFA-2B-NJFT
     Dosage: 450 MCG
     Route: 058
  4. BESREMI [Suspect]
     Active Substance: ROPEGINTERFERON ALFA-2B-NJFT
     Dosage: 500 MCG, Q2W (EVERY 14 DAYS)
     Route: 058
  5. BESREMI [Suspect]
     Active Substance: ROPEGINTERFERON ALFA-2B-NJFT
     Dosage: UNK
     Route: 065
  6. BESREMI [Suspect]
     Active Substance: ROPEGINTERFERON ALFA-2B-NJFT
     Dosage: 500 MCG
     Route: 065

REACTIONS (17)
  - Neuropathy peripheral [Unknown]
  - Fall [Recovering/Resolving]
  - Platelet count increased [Not Recovered/Not Resolved]
  - Blood test abnormal [Unknown]
  - Red blood cell count increased [Unknown]
  - Drug ineffective [Unknown]
  - Contusion [Unknown]
  - Infection [Unknown]
  - Pain [Recovered/Resolved]
  - Influenza like illness [Recovered/Resolved]
  - Chills [Recovered/Resolved]
  - Pain in extremity [Unknown]
  - Visual impairment [Unknown]
  - Pruritus [Unknown]
  - White blood cell count decreased [Not Recovered/Not Resolved]
  - Cataract [Unknown]
  - Fatigue [Unknown]
